FAERS Safety Report 5448111-6 (Version None)
Quarter: 2007Q3

REPORT INFORMATION
  Report Type: 
  Country: None (occurrence: None)
  Receive Date: 20070803
  Receipt Date: 20070622
  Transmission Date: 20080115
  Serious: Yes (Hospitalization, Other)
  Sender: FDA-Public Use
  Company Number: 200710337BWH

PATIENT
  Age: 87 Year
  Sex: Male
  Weight: 80.7403 kg

DRUGS (9)
  1. NEXAVAR [Suspect]
     Indication: METASTATIC RENAL CELL CARCINOMA
     Dosage: 400 MG, BID, ORAL
     Route: 048
     Dates: start: 20061106, end: 20061206
  2. VALSARTAN [Concomitant]
  3. TERAZOSIN HCL [Concomitant]
  4. FUROSEMIDE [Concomitant]
  5. FELODIPINE SANDOZ [Concomitant]
  6. PYRIDOXINE HCL [Concomitant]
  7. ALBUTEROL/ IPRATROPIUM MDI [Concomitant]
  8. HYDROCORTISONE CREAM [Concomitant]
  9. SILVER SULFADIAZINE [Concomitant]

REACTIONS (7)
  - ERYTHEMA [None]
  - PALMAR-PLANTAR ERYTHRODYSAESTHESIA SYNDROME [None]
  - PURPURA [None]
  - RASH MACULAR [None]
  - SKIN EXFOLIATION [None]
  - SWELLING [None]
  - TENDERNESS [None]
